FAERS Safety Report 13200896 (Version 1)
Quarter: 2017Q1

REPORT INFORMATION
  Report Type: Spontaneous
  Country: CA (occurrence: CA)
  Receive Date: 20170209
  Receipt Date: 20170209
  Transmission Date: 20170428
  Serious: Yes (Other)
  Sender: FDA-Public Use
  Company Number: CA-BAXTER-2017BAX004820

PATIENT
  Age: 15 Year
  Sex: Female

DRUGS (2)
  1. FLUCONAZOLE INJECTION, USP, 400MG/200ML [Suspect]
     Active Substance: FLUCONAZOLE
     Indication: ANTIFUNGAL PROPHYLAXIS
     Route: 065
  2. VALACICLOVIR [Concomitant]
     Active Substance: VALACYCLOVIR HYDROCHLORIDE
     Indication: ANTIVIRAL PROPHYLAXIS
     Route: 065

REACTIONS (6)
  - Stridor [Unknown]
  - Dyspnoea [Unknown]
  - Laryngitis fungal [Unknown]
  - Off label use [Unknown]
  - Dysphonia [Unknown]
  - Mucormycosis [Unknown]
